FAERS Safety Report 8063176-3 (Version None)
Quarter: 2012Q1

REPORT INFORMATION
  Report Type: 
  Country: None (occurrence: None)
  Receive Date: 20120123
  Receipt Date: 20120112
  Transmission Date: 20120608
  Serious: Yes (Hospitalization, Other)
  Sender: FDA-Public Use
  Company Number: PHFR2011GB06070

PATIENT
  Sex: Male

DRUGS (3)
  1. CLOZARIL [Suspect]
     Route: 048
     Dates: start: 20111110
  2. CLOZARIL [Suspect]
     Dosage: 100 MG, UNK
     Route: 048
  3. CLOZARIL [Suspect]
     Indication: SCHIZOPHRENIA
     Route: 048
     Dates: start: 20111005, end: 20111016

REACTIONS (7)
  - TACHYCARDIA [None]
  - INFECTION [None]
  - INCOHERENT [None]
  - URINARY TRACT INFECTION [None]
  - HYPERTENSION [None]
  - TREMOR [None]
  - BODY TEMPERATURE INCREASED [None]
